FAERS Safety Report 12802900 (Version 1)
Quarter: 2016Q4

REPORT INFORMATION
  Report Type: Spontaneous
  Country: US (occurrence: US)
  Receive Date: 20161001
  Receipt Date: 20161001
  Transmission Date: 20170207
  Serious: Yes (Life-Threatening)
  Sender: FDA-Public Use
  Company Number: None

PATIENT
  Age: 79 Year
  Sex: Male
  Weight: 64.8 kg

DRUGS (2)
  1. D-VITA [Suspect]
     Active Substance: CHOLECALCIFEROL
     Indication: VITAMIN SUPPLEMENTATION
     Dosage: OTHER ROUTE:G-TUBE??1000 U?
     Dates: start: 20160701, end: 20160922
  2. SENEXON [Suspect]
     Active Substance: SENNOSIDES A AND B
     Indication: CONSTIPATION
     Dosage: ?          OTHER ROUTE:G-TUBE?
     Dates: start: 20160331, end: 20160922

REACTIONS (4)
  - Urinary tract infection [None]
  - Product contamination microbial [None]
  - Pneumonia [None]
  - Product use issue [None]

NARRATIVE: CASE EVENT DATE: 20160917
